FAERS Safety Report 20538340 (Version 1)
Quarter: 2022Q1

REPORT INFORMATION
  Report Type: Spontaneous
  Country: BE (occurrence: BE)
  Receive Date: 20220302
  Receipt Date: 20220302
  Transmission Date: 20220423
  Serious: Yes (Hospitalization, Other)
  Sender: FDA-Public Use
  Company Number: BE-Accord-255070

PATIENT
  Age: 74 Year
  Sex: Female

DRUGS (2)
  1. OXALIPLATIN [Suspect]
     Active Substance: OXALIPLATIN
     Indication: Colorectal adenocarcinoma
     Dosage: A TOTALLY IMPLANTABLE VENOUS ACCESS DEVICE (TIVAD) WAS INSERTED IN THE RIGHT CEPHALIC VEIN.
  2. FLUOROURACIL [Concomitant]
     Active Substance: FLUOROURACIL
     Indication: Colorectal adenocarcinoma
     Dosage: A TOTALLY IMPLANTABLE VENOUS ACCESS DEVICE (TIVAD) WAS INSERTED IN THE RIGHT CEPHALIC VEIN.

REACTIONS (3)
  - Administration site extravasation [Recovered/Resolved]
  - Catheter site cellulitis [Recovered/Resolved]
  - Speech disorder [Unknown]
